FAERS Safety Report 18549610 (Version 3)
Quarter: 2025Q2

REPORT INFORMATION
  Report Type: Spontaneous
  Country: PL (occurrence: PL)
  Receive Date: 20201126
  Receipt Date: 20250617
  Transmission Date: 20250717
  Serious: Yes (Hospitalization, Other)
  Sender: AUROBINDO
  Company Number: PL-LEKAM-2020-31-ARIPILEK_OLANZAPINE LEKAM

PATIENT
  Age: 28 Year
  Sex: Female
  Weight: 104 kg

DRUGS (4)
  1. ARIPIPRAZOLE [Suspect]
     Active Substance: ARIPIPRAZOLE
     Indication: Schizophrenia
     Dosage: 15 MILLIGRAM, ONCE A DAY (DOSE REDUCTION TO 7.5 MG)
     Route: 065
  2. ARIPIPRAZOLE [Suspect]
     Active Substance: ARIPIPRAZOLE
     Dosage: 7.5 MILLIGRAM, ONCE A DAY
     Route: 065
  3. OLANZAPINE [Suspect]
     Active Substance: OLANZAPINE
     Indication: Schizophrenia
     Dosage: 10 MILLIGRAM, ONCE A DAY
     Route: 065
  4. OLANZAPINE [Suspect]
     Active Substance: OLANZAPINE
     Dosage: 5 MILLIGRAM, ONCE A DAY
     Route: 065

REACTIONS (6)
  - Metabolic syndrome [Unknown]
  - Anogenital warts [Unknown]
  - Obesity [Unknown]
  - Premature baby [Unknown]
  - Pre-eclampsia [Unknown]
  - Premature delivery [Unknown]
